FAERS Safety Report 7620862-4 (Version None)
Quarter: 2011Q3

REPORT INFORMATION
  Report Type: 
  Country: None (occurrence: None)
  Receive Date: 20110719
  Receipt Date: 20110711
  Transmission Date: 20111222
  Serious: Yes (Other)
  Sender: FDA-Public Use
  Company Number: GB-ABBOTT-11P-167-0835060-00

PATIENT
  Sex: Female
  Weight: 66.2 kg

DRUGS (3)
  1. HUMIRA [Suspect]
     Indication: CROHN'S DISEASE
     Dates: start: 20091223, end: 20110609
  2. AZATHIOPRINE [Concomitant]
     Indication: CROHN'S DISEASE
     Route: 048
     Dates: start: 20060101
  3. PENTASA [Concomitant]
     Indication: CROHN'S DISEASE
     Route: 048
     Dates: start: 20060101, end: 20090101

REACTIONS (5)
  - LYMPHADENOPATHY [None]
  - HORMONE LEVEL ABNORMAL [None]
  - BREAST TENDERNESS [None]
  - MENSTRUATION IRREGULAR [None]
  - MENSTRUAL DISORDER [None]
